FAERS Safety Report 8332786-8 (Version None)
Quarter: 2012Q2

REPORT INFORMATION
  Report Type: 
  Country: None (occurrence: None)
  Receive Date: 20120503
  Receipt Date: 20120425
  Transmission Date: 20120825
  Serious: Yes (Other)
  Sender: FDA-Public Use
  Company Number: JP-VERTEX PHARMACEUTICALS INC.-AE-2012-006178

PATIENT
  Age: 61 Year
  Sex: Female

DRUGS (5)
  1. TELAVIC (TELAPREVIR) [Suspect]
     Indication: HEPATITIS C
     Route: 048
     Dates: start: 20120302, end: 20120305
  2. PEG-INTRON [Concomitant]
     Indication: HEPATITIS C
     Route: 058
     Dates: start: 20120302
  3. REBETOL [Concomitant]
     Route: 048
     Dates: start: 20120402
  4. REBETOL [Concomitant]
     Indication: HEPATITIS C
     Route: 048
     Dates: start: 20120302
  5. PEG-INTRON [Concomitant]
     Route: 058
     Dates: start: 20120309

REACTIONS (1)
  - NEUTROPHIL COUNT DECREASED [None]
